FAERS Safety Report 12502932 (Version 1)
Quarter: 2016Q2

REPORT INFORMATION
  Report Type: Report from Study
  Country: US (occurrence: US)
  Receive Date: 20160628
  Receipt Date: 20160628
  Transmission Date: 20160815
  Serious: No
  Sender: FDA-Public Use
  Company Number: PHEH2016US015345

PATIENT
  Sex: Male

DRUGS (2)
  1. COSENTYX [Suspect]
     Active Substance: SECUKINUMAB
     Indication: PSORIASIS
     Dosage: 300 MG, QMO (4)
     Route: 065
     Dates: start: 20150921, end: 20160101
  2. COSENTYX [Suspect]
     Active Substance: SECUKINUMAB
     Dosage: 300 MG, QMO (4)
     Route: 065
     Dates: start: 20160320

REACTIONS (1)
  - Urinary tract infection viral [Unknown]

NARRATIVE: CASE EVENT DATE: 201601
